FAERS Safety Report 9274367 (Version 1)
Quarter: 2013Q2

REPORT INFORMATION
  Report Type: Spontaneous
  Country: US (occurrence: US)
  Receive Date: 20130506
  Receipt Date: 20130506
  Transmission Date: 20140414
  Serious: No
  Sender: FDA-Public Use
  Company Number: US-009507513-1304USA017811

PATIENT
  Age: 37 Year
  Sex: Female

DRUGS (4)
  1. PUREGON PEN [Suspect]
     Indication: PRODUCT USED FOR UNKNOWN INDICATION
     Dosage: UNK
     Dates: start: 20130413
  2. FOLLISTIM AQ [Concomitant]
     Indication: ASSISTED FERTILISATION
     Dosage: 300 IU, QD
     Route: 059
     Dates: start: 20130413
  3. MENOPUR [Concomitant]
  4. LEUPROLIDE ACETATE [Concomitant]

REACTIONS (1)
  - Incorrect dose administered by device [Unknown]
